FAERS Safety Report 23862955 (Version 3)
Quarter: 2024Q3

REPORT INFORMATION
  Report Type: Spontaneous
  Country: BR (occurrence: BR)
  Receive Date: 20240516
  Receipt Date: 20240730
  Transmission Date: 20241017
  Serious: Yes (Other)
  Sender: TEVA
  Company Number: BR-TEVA-VS-3197586

PATIENT
  Age: 33 Year
  Sex: Female

DRUGS (4)
  1. COPAXONE [Suspect]
     Active Substance: GLATIRAMER ACETATE
     Indication: Multiple sclerosis
     Dosage: TIME INTERVAL: 0.33333333 WEEKS: THE PATIENT USED COPAXONE 40 MG 3 TIMES PER WEEK. (MONDAY, WEDNE...
     Route: 065
     Dates: start: 20230307, end: 20230712
  2. COPAXONE [Suspect]
     Active Substance: GLATIRAMER ACETATE
     Indication: Multiple sclerosis
     Route: 065
     Dates: start: 202405
  3. DEVICE [Suspect]
     Active Substance: DEVICE
     Route: 065
  4. AMITRIPTYLINE HYDROCHLORIDE [Concomitant]
     Active Substance: AMITRIPTYLINE HYDROCHLORIDE
     Indication: Anxiety
     Route: 065
     Dates: start: 2021

REACTIONS (6)
  - Immunodeficiency [Recovered/Resolved]
  - Vitamin B12 decreased [Not Recovered/Not Resolved]
  - Pyrexia [Recovered/Resolved]
  - Oropharyngeal pain [Recovered/Resolved]
  - Ear infection [Recovered/Resolved]
  - Influenza [Recovered/Resolved]

NARRATIVE: CASE EVENT DATE: 20230101
